FAERS Safety Report 14801454 (Version 4)
Quarter: 2018Q4

REPORT INFORMATION
  Report Type: Spontaneous
  Country: IT (occurrence: IT)
  Receive Date: 20180424
  Receipt Date: 20181022
  Transmission Date: 20190204
  Serious: Yes (Hospitalization)
  Sender: FDA-Public Use
  Company Number: IT-MYLANLABS-2018M1025069

PATIENT
  Age: 89 Year
  Sex: Female

DRUGS (1)
  1. LANSOPRAZOLE. [Suspect]
     Active Substance: LANSOPRAZOLE
     Indication: GASTRODUODENAL HAEMORRHAGE
     Dosage: 30 MG, QD
     Route: 048
     Dates: end: 20171018

REACTIONS (18)
  - Movement disorder [Unknown]
  - Urine potassium decreased [Unknown]
  - Hypoaesthesia [Unknown]
  - Confusional state [Unknown]
  - Hypocalciuria [Unknown]
  - Microcytic anaemia [Unknown]
  - Dystonia [Unknown]
  - Urine phosphorus decreased [Unknown]
  - Pyrexia [Unknown]
  - C-reactive protein increased [Unknown]
  - Urine magnesium decreased [Unknown]
  - Hypomagnesaemia [Recovered/Resolved]
  - Hypokalaemia [Unknown]
  - Alanine aminotransferase increased [Unknown]
  - Hypocalcaemia [Unknown]
  - Blood urea increased [Unknown]
  - Psychomotor retardation [Unknown]
  - Diarrhoea [Unknown]

NARRATIVE: CASE EVENT DATE: 20171018
